FAERS Safety Report 8967703 (Version 1)
Quarter: 2012Q4

REPORT INFORMATION
  Report Type: Spontaneous
  Country: JP (occurrence: None)
  Receive Date: 20121210
  Receipt Date: 20121210
  Transmission Date: 20130627
  Serious: Yes (Hospitalization)
  Sender: FDA-Public Use
  Company Number: FK201203697

PATIENT
  Age: 61 Year
  Sex: Male

DRUGS (4)
  1. CISPLATIN [Suspect]
     Indication: METASTATIC GASTRIC CANCER
     Dosage: 60 mg/m2
  2. GIMERACIL [Suspect]
     Indication: METASTATIC GASTRIC CANCER
  3. OTERACIL [Suspect]
  4. TEGAFUR [Suspect]

REACTIONS (5)
  - Toxicity to various agents [None]
  - Dizziness [None]
  - Muscular weakness [None]
  - Tremor [None]
  - Drug level increased [None]
